FAERS Safety Report 8770376 (Version 4)
Quarter: 2013Q1

REPORT INFORMATION
  Report Type: Spontaneous
  Country: US (occurrence: US)
  Receive Date: 20120906
  Receipt Date: 20130311
  Transmission Date: 20140127
  Serious: Yes (Hospitalization, Other)
  Sender: FDA-Public Use
  Company Number: US-009507513-1112USA02418

PATIENT
  Sex: Female
  Weight: 170 kg

DRUGS (11)
  1. FOSAMAX [Suspect]
     Indication: OSTEOPENIA
     Dosage: 35 MG, UNK
     Route: 048
     Dates: start: 20060905, end: 201012
  2. FOSAMAX [Suspect]
     Dosage: 35 MG, UNK
     Route: 048
     Dates: start: 20080303, end: 20101020
  3. ALENDRONATE SODIUM [Suspect]
     Dosage: 35 MG, UNK
     Route: 048
     Dates: start: 20080903, end: 20101120
  4. CALCIUM (UNSPECIFIED) [Concomitant]
     Dosage: TO PRESENT
     Dates: start: 1990
  5. VITAMIN D (UNSPECIFIED) [Concomitant]
     Dosage: TO PRESENT
     Dates: start: 1990
  6. VITAMIN E [Concomitant]
     Dosage: TO PRESENT
     Dates: start: 1990
  7. OMEGA-3 MARINE TRIGLYCERIDES [Concomitant]
     Dosage: TO PRESENT
     Dates: start: 1990
  8. DICLOFENAC [Concomitant]
  9. PLAQUENIL [Concomitant]
     Indication: RHEUMATOID ARTHRITIS
     Dosage: 200 MG, QD
     Dates: start: 1998
  10. ENBREL [Concomitant]
     Indication: RHEUMATOID ARTHRITIS
  11. METHOTREXATE [Concomitant]
     Indication: RHEUMATOID ARTHRITIS
     Dosage: 25 MG, QW

REACTIONS (30)
  - Femur fracture [Unknown]
  - Open reduction of fracture [Unknown]
  - Femur fracture [Unknown]
  - Device failure [Unknown]
  - Anaemia postoperative [Recovering/Resolving]
  - Fracture nonunion [Recovering/Resolving]
  - Bone graft [Unknown]
  - Cataract operation [Unknown]
  - Cataract [Unknown]
  - Femur fracture [Unknown]
  - Dental caries [Unknown]
  - Abscess [Unknown]
  - Vitamin D deficiency [Unknown]
  - Hypertension [Unknown]
  - Blood cholesterol increased [Unknown]
  - Fall [Unknown]
  - Contusion [Unknown]
  - Upper respiratory tract infection [Recovering/Resolving]
  - Cough [Recovering/Resolving]
  - Atrioventricular block first degree [Unknown]
  - Hypokalaemia [Unknown]
  - Escherichia urinary tract infection [Unknown]
  - Hypotension [Unknown]
  - Anaemia postoperative [Unknown]
  - Allergy to arthropod sting [Unknown]
  - Cellulitis [Unknown]
  - Anxiety [Unknown]
  - Arthralgia [Unknown]
  - Diarrhoea [Unknown]
  - Constipation [Unknown]
